FAERS Safety Report 14999367 (Version 1)
Quarter: 2018Q2

REPORT INFORMATION
  Report Type: Spontaneous
  Country: US (occurrence: US)
  Receive Date: 20180612
  Receipt Date: 20180612
  Transmission Date: 20180711
  Serious: Yes (Other)
  Sender: FDA-Public Use
  Company Number: US-PFIZER INC-2018233988

PATIENT
  Age: 56 Year
  Sex: Male

DRUGS (1)
  1. IBRANCE [Suspect]
     Active Substance: PALBOCICLIB
     Indication: SOFT TISSUE NEOPLASM
     Dosage: 125 MG, CYCLIC (DAILY 21 DAYS ON, 7 DAYS OFF)
     Route: 048
     Dates: start: 20180518

REACTIONS (3)
  - Product use in unapproved indication [Unknown]
  - Diarrhoea [Unknown]
  - Product use issue [Unknown]

NARRATIVE: CASE EVENT DATE: 20180518
